FAERS Safety Report 8327564 (Version 3)
Quarter: 2013Q3

REPORT INFORMATION
  Report Type: Spontaneous
  Country: CN (occurrence: CN)
  Receive Date: 20120109
  Receipt Date: 20130708
  Transmission Date: 20140515
  Serious: Yes (Hospitalization, Other)
  Sender: FDA-Public Use
  Company Number: CN-GLAXOSMITHKLINE-B0772954A

PATIENT
  Sex: Female

DRUGS (1)
  1. RYTMONORM [Suspect]
     Indication: ARRHYTHMIA PROPHYLAXIS
     Dosage: 150MG TWICE PER DAY
     Route: 048
     Dates: start: 20111213, end: 20111216

REACTIONS (4)
  - Atrial flutter [Recovered/Resolved]
  - Hypotension [Recovering/Resolving]
  - Dry mouth [Recovered/Resolved]
  - Vision blurred [Recovered/Resolved]
